FAERS Safety Report 6980796-5 (Version None)
Quarter: 2010Q3

REPORT INFORMATION
  Report Type: 
  Country: None (occurrence: None)
  Receive Date: 20100914
  Receipt Date: 20100908
  Transmission Date: 20110219
  Serious: Yes (Other)
  Sender: FDA-Public Use
  Company Number: FR-ABBOTT-10P-056-0650421-00

PATIENT
  Sex: Female
  Weight: 48 kg

DRUGS (12)
  1. HUMIRA [Suspect]
     Indication: RHEUMATOID ARTHRITIS
     Route: 058
     Dates: start: 20040630
  2. COMMERCIAL HUMIRA [Concomitant]
     Indication: RHEUMATOID ARTHRITIS
     Route: 058
     Dates: start: 20031001
  3. ARAVA [Concomitant]
     Indication: RHEUMATOID ARTHRITIS
     Route: 048
     Dates: start: 20010815, end: 20020915
  4. TRAMADOL HCL [Concomitant]
     Indication: RHEUMATOID ARTHRITIS
     Route: 048
     Dates: start: 20020115
  5. OMEPRAZOLE [Concomitant]
     Indication: PROPHYLAXIS AGAINST GASTROINTESTINAL ULCER
     Route: 048
     Dates: start: 20020701
  6. CYCLADOL [Concomitant]
     Indication: RHEUMATOID ARTHRITIS
     Route: 048
     Dates: start: 20020915
  7. NOVATREX [Concomitant]
     Indication: RHEUMATOID ARTHRITIS
     Route: 048
     Dates: start: 20020915, end: 20021106
  8. NOVATREX [Concomitant]
     Route: 048
     Dates: start: 20021107, end: 20040116
  9. NOVATREX [Concomitant]
     Route: 048
     Dates: start: 20040116
  10. RIVOTRIL [Concomitant]
     Indication: MUSCLE SPASMS
     Route: 048
     Dates: start: 20030302, end: 20030407
  11. RIVOTRIL [Concomitant]
     Route: 048
     Dates: start: 20030408
  12. RIVOTRIL [Concomitant]
     Route: 048
     Dates: start: 20021015, end: 20030301

REACTIONS (1)
  - TRANSIENT ISCHAEMIC ATTACK [None]
